FAERS Safety Report 8951156 (Version 1)
Quarter: 2012Q4

REPORT INFORMATION
  Report Type: 
  Country: US (occurrence: US)
  Receive Date: 20121207
  Receipt Date: 20121207
  Transmission Date: 20130627
  Serious: Yes (Death)
  Sender: FDA-Public Use
  Company Number: US-JNJFOC-20121201397

PATIENT
  Sex: Male

DRUGS (2)
  1. DURAGESIC [Suspect]
     Indication: LUNG NEOPLASM MALIGNANT
     Route: 062
  2. DURAGESIC [Suspect]
     Indication: LUNG NEOPLASM MALIGNANT
     Route: 062

REACTIONS (3)
  - Malignant neoplasm progression [Fatal]
  - Adverse event [Unknown]
  - Inadequate analgesia [Unknown]
